FAERS Safety Report 7301774-2 (Version None)
Quarter: 2011Q1

REPORT INFORMATION
  Report Type: 
  Country: None (occurrence: None)
  Receive Date: 20110218
  Receipt Date: 20110214
  Transmission Date: 20110831
  Serious: Yes (Other)
  Sender: FDA-Public Use
  Company Number: A0913429A

PATIENT
  Age: 31 Year
  Sex: Male

DRUGS (2)
  1. ALBUTEROL INHALER [Concomitant]
  2. ADVAIR DISKUS 100/50 [Suspect]
     Indication: ASTHMA
     Dosage: 2PUFF TWICE PER DAY
     Route: 055
     Dates: start: 20101114, end: 20110211

REACTIONS (9)
  - HYPERHIDROSIS [None]
  - MUSCLE SPASMS [None]
  - DECREASED APPETITE [None]
  - PALPITATIONS [None]
  - BED REST [None]
  - MUSCULOSKELETAL STIFFNESS [None]
  - DEPRESSED LEVEL OF CONSCIOUSNESS [None]
  - SWOLLEN TONGUE [None]
  - ARTHRALGIA [None]
